FAERS Safety Report 16525625 (Version 1)
Quarter: 2019Q3

REPORT INFORMATION
  Report Type: Spontaneous
  Country: US (occurrence: US)
  Receive Date: 20190703
  Receipt Date: 20190703
  Transmission Date: 20191004
  Serious: No
  Sender: FDA-Public Use
  Company Number: US-SA-2019SA176950

PATIENT
  Age: 72 Year
  Sex: Female

DRUGS (6)
  1. HYDROMET [HYDROCHLOROTHIAZIDE;METHYLDOPA] [Concomitant]
  2. PLENVU [Concomitant]
     Active Substance: ASCORBIC ACID\POLYETHYLENE GLYCOL 3350\POTASSIUM CHLORIDE\SODIUM ASCORBATE\SODIUM CHLORIDE\SODIUM SULFATE
  3. DUPIXENT [Suspect]
     Active Substance: DUPILUMAB
     Indication: ASTHMA
     Dosage: 300 MG, QOW
     Route: 058
     Dates: start: 20190530
  4. PREDNISONE. [Concomitant]
     Active Substance: PREDNISONE
  5. XARELTO [Concomitant]
     Active Substance: RIVAROXABAN
  6. ALBUTEROL HFA [Concomitant]
     Active Substance: ALBUTEROL SULFATE

REACTIONS (1)
  - Rash [Not Recovered/Not Resolved]
